FAERS Safety Report 5318756-2 (Version None)
Quarter: 2007Q2

REPORT INFORMATION
  Report Type: 
  Country: None (occurrence: None)
  Receive Date: 20070503
  Receipt Date: 20070503
  Transmission Date: 20071010
  Serious: No
  Sender: FDA-Public Use
  Company Number: None

PATIENT
  Sex: Female
  Weight: 60 kg

DRUGS (1)
  1. FERRLECIT [Suspect]
     Indication: ANAEMIA
     Dosage: 250MG I.V.
     Route: 042
     Dates: start: 20070126

REACTIONS (3)
  - BURNING SENSATION [None]
  - INFUSION RELATED REACTION [None]
  - PALPITATIONS [None]
